FAERS Safety Report 12619179 (Version 1)
Quarter: 2016Q3

REPORT INFORMATION
  Report Type: Spontaneous
  Country: CA (occurrence: CA)
  Receive Date: 20160803
  Receipt Date: 20160803
  Transmission Date: 20161109
  Serious: Yes (Other)
  Sender: FDA-Public Use
  Company Number: CA-PFIZER INC-3001556

PATIENT
  Age: 37 Year
  Sex: Female

DRUGS (1)
  1. VANCOMYCIN HCL [Suspect]
     Active Substance: VANCOMYCIN HYDROCHLORIDE
     Indication: PRODUCT USED FOR UNKNOWN INDICATION
     Dosage: 1 G, ONCE
     Route: 042

REACTIONS (5)
  - Dizziness [Unknown]
  - Somnolence [Unknown]
  - Burning sensation [Unknown]
  - Erythema [Unknown]
  - Lip swelling [Unknown]
